FAERS Safety Report 15198524 (Version 1)
Quarter: 2018Q3

REPORT INFORMATION
  Report Type: Report from Study
  Country: US (occurrence: US)
  Receive Date: 20180725
  Receipt Date: 20180725
  Transmission Date: 20181010
  Serious: Yes (Other)
  Sender: FDA-Public Use
  Company Number: US-JAZZ-2018-US-011026

PATIENT
  Age: 45 Year
  Sex: Female

DRUGS (14)
  1. XYREM [Suspect]
     Active Substance: SODIUM OXYBATE
     Indication: CATAPLEXY
  2. CURCUMA LONGA [Concomitant]
     Active Substance: HERBALS\TURMERIC
  3. PROGESTERONE. [Concomitant]
     Active Substance: PROGESTERONE
  4. METOPROLOL SUCCINATE. [Concomitant]
     Active Substance: METOPROLOL SUCCINATE
  5. VITAMIN D3 [Concomitant]
     Active Substance: CHOLECALCIFEROL
  6. WELLBUTRIN [Concomitant]
     Active Substance: BUPROPION HYDROCHLORIDE
  7. XYREM [Suspect]
     Active Substance: SODIUM OXYBATE
     Indication: NARCOLEPSY
     Dosage: 2.25G,BID
     Route: 048
     Dates: start: 20180708
  8. METFORMIN HCL [Concomitant]
     Active Substance: METFORMIN HYDROCHLORIDE
  9. RETINOL [Concomitant]
     Active Substance: RETINOL
  10. TROKENDI [Concomitant]
     Active Substance: TOPIRAMATE
  11. MODAFINIL. [Concomitant]
     Active Substance: MODAFINIL
  12. ACIPHEX [Concomitant]
     Active Substance: RABEPRAZOLE SODIUM
  13. SUMATRIPTAN. [Concomitant]
     Active Substance: SUMATRIPTAN
  14. VITAMIN B [Concomitant]
     Active Substance: VITAMIN B

REACTIONS (4)
  - Confusional state [Not Recovered/Not Resolved]
  - Disability [Not Recovered/Not Resolved]
  - Somnolence [Not Recovered/Not Resolved]
  - Disorientation [Not Recovered/Not Resolved]

NARRATIVE: CASE EVENT DATE: 20180710
